FAERS Safety Report 21593244 (Version 1)
Quarter: 2022Q4

REPORT INFORMATION
  Report Type: Report from Study
  Country: US (occurrence: US)
  Receive Date: 20221114
  Receipt Date: 20221114
  Transmission Date: 20230113
  Serious: Yes (Other)
  Sender: FDA-Public Use
  Company Number: US-ABBVIE-4193819

PATIENT
  Sex: Male

DRUGS (1)
  1. VENCLEXTA [Suspect]
     Active Substance: VENETOCLAX
     Indication: Acute myeloid leukaemia
     Dosage: END DATE WAS 2022.
     Route: 048
     Dates: start: 20220707

REACTIONS (2)
  - Leukaemia [Not Recovered/Not Resolved]
  - Drug ineffective [Unknown]
